FAERS Safety Report 21519533 (Version 1)
Quarter: 2022Q4

REPORT INFORMATION
  Report Type: Spontaneous
  Country: US (occurrence: None)
  Receive Date: 20221027
  Receipt Date: 20221027
  Transmission Date: 20230113
  Serious: Yes (Hospitalization)
  Sender: FDA-Public Use
  Company Number: None

PATIENT
  Age: 71 Year
  Sex: Male

DRUGS (1)
  1. ALOGLIPTIN [Suspect]
     Active Substance: ALOGLIPTIN
     Indication: Diabetes mellitus
     Route: 048
     Dates: start: 20190401, end: 20220916

REACTIONS (3)
  - Pancreatitis acute [None]
  - Cholelithiasis [None]
  - Pulmonary mass [None]

NARRATIVE: CASE EVENT DATE: 20220816
